FAERS Safety Report 5930810-0 (Version None)
Quarter: 2008Q4

REPORT INFORMATION
  Report Type: 
  Country: None (occurrence: None)
  Receive Date: 20081027
  Receipt Date: 20081015
  Transmission Date: 20090506
  Serious: Yes (Other)
  Sender: FDA-Public Use
  Company Number: US-ROCHE-588971

PATIENT
  Sex: Female
  Weight: 66.7 kg

DRUGS (7)
  1. CAPECITABINE [Suspect]
     Route: 048
     Dates: start: 20071106, end: 20080926
  2. LISINOPRIL [Concomitant]
     Indication: HYPERTENSION
     Dosage: STARTED ON ADMISSION, QD
     Route: 048
  3. METOPROLOL TARTRATE [Concomitant]
     Indication: HYPERTENSION
     Dosage: STARTED ON ADMISSION, QD
     Route: 048
  4. PANCREASE [Concomitant]
     Dosage: STARTED ON ADMISSION, BEFORE MEALS (AC)
     Route: 048
  5. PLAVIX [Concomitant]
     Indication: CORONARY ARTERY DISEASE
     Dosage: STARTED ON ADMISSION, QD
     Route: 048
  6. ASPIRIN [Concomitant]
     Indication: CORONARY ARTERY DISEASE
     Dosage: STARTED ON ADMISSION, QD
     Route: 048
  7. LANTUS [Concomitant]
     Dosage: DRUG: LANTUS INSULIN-DM, STARTED ON ADMISSION

REACTIONS (1)
  - DISEASE PROGRESSION [None]
